FAERS Safety Report 8853132 (Version 3)
Quarter: 2012Q4

REPORT INFORMATION
  Report Type: 
  Country: JP (occurrence: JP)
  Receive Date: 20121023
  Receipt Date: 20121220
  Transmission Date: 20130627
  Serious: Yes (Hospitalization)
  Sender: FDA-Public Use
  Company Number: JP-AMGEN-JPNSP2012066820

PATIENT
  Age: 79 Year
  Sex: Male
  Weight: 57 kg

DRUGS (2)
  1. RANMARK [Suspect]
     Indication: PROSTATE CANCER
     Route: 058
     Dates: start: 20120907, end: 20121005
  2. TANKARU [Concomitant]
     Route: 065

REACTIONS (1)
  - Hypocalcaemia [Recovering/Resolving]
